FAERS Safety Report 5258368-2 (Version None)
Quarter: 2007Q1

REPORT INFORMATION
  Report Type: 
  Country: None (occurrence: None)
  Receive Date: 20070308
  Receipt Date: 20070223
  Transmission Date: 20070707
  Serious: Yes (Hospitalization, Other)
  Sender: FDA-Public Use
  Company Number: PHEH2005US10717

PATIENT
  Age: 53 Year
  Sex: Female
  Weight: 53.514 kg

DRUGS (15)
  1. AREDIA [Suspect]
     Indication: METASTASES TO BONE
     Dosage: 90 MG, UNK
     Route: 042
     Dates: start: 20020129, end: 20050426
  2. MS CONTIN [Concomitant]
     Indication: BONE PAIN
     Dosage: 30 MG, Q12H
     Route: 048
     Dates: start: 20011112
  3. FASLODEX [Concomitant]
     Indication: BREAST CANCER
     Dosage: 250 MG, QMO
     Route: 030
     Dates: start: 20030318
  4. TAMOXIFEN CITRATE [Concomitant]
     Indication: BREAST CANCER
     Dates: start: 20020124
  5. ZANTAC [Concomitant]
     Dosage: 150 MG, BID
  6. NAPROSYN [Concomitant]
     Indication: ARTHRITIS
     Dosage: 500 MG, BID
  7. MONOPRIL [Concomitant]
     Indication: HYPERTENSION
     Dosage: 20 MG, QD
  8. TAGAMET [Concomitant]
     Dosage: UNK, BID
  9. ELAVIL [Concomitant]
     Dosage: 50 MG, QD
  10. HYDROCODONE [Concomitant]
  11. RADIATION [Concomitant]
     Indication: PAIN
  12. DURAGESIC-100 [Concomitant]
     Indication: PAIN
  13. VICODIN [Concomitant]
     Indication: PAIN
  14. TEGRETOL [Concomitant]
  15. FLEXERIL [Concomitant]

REACTIONS (48)
  - BALANCE DISORDER [None]
  - BONE DISORDER [None]
  - BONE LESION [None]
  - DECREASED APPETITE [None]
  - DIARRHOEA [None]
  - DISEASE PROGRESSION [None]
  - DYSPHAGIA [None]
  - ECZEMA [None]
  - FALL [None]
  - FATIGUE [None]
  - FISTULA [None]
  - GAIT DISTURBANCE [None]
  - HAEMATOCHEZIA [None]
  - HEADACHE [None]
  - HYPOAESTHESIA [None]
  - JOINT SPRAIN [None]
  - METASTASES TO SPINE [None]
  - MUSCULAR WEAKNESS [None]
  - MUSCULOSKELETAL CHEST PAIN [None]
  - NAUSEA [None]
  - NECK MASS [None]
  - OEDEMA [None]
  - OEDEMA PERIPHERAL [None]
  - ORAL INFECTION [None]
  - ORAL PAIN [None]
  - OSTEOMYELITIS [None]
  - OSTEONECROSIS [None]
  - PAIN [None]
  - PAIN IN JAW [None]
  - PAPILLARY THYROID CANCER [None]
  - PARAESTHESIA [None]
  - PARATHYROIDECTOMY [None]
  - POSTMENOPAUSAL HAEMORRHAGE [None]
  - PRIMARY SEQUESTRUM [None]
  - RESORPTION BONE INCREASED [None]
  - ROAD TRAFFIC ACCIDENT [None]
  - STOMATITIS [None]
  - SWELLING [None]
  - SYNCOPE [None]
  - TENDERNESS [None]
  - THYROID NEOPLASM [None]
  - TOOTH EXTRACTION [None]
  - TOOTH INFECTION [None]
  - VAGINAL INFECTION [None]
  - VERTIGO [None]
  - VOMITING [None]
  - VOMITING PROJECTILE [None]
  - WEIGHT DECREASED [None]
